FAERS Safety Report 8508481-9 (Version None)
Quarter: 2012Q3

REPORT INFORMATION
  Report Type: 
  Country: None (occurrence: None)
  Receive Date: 20120713
  Receipt Date: 20120709
  Transmission Date: 20120928
  Serious: Yes (Hospitalization, Other)
  Sender: FDA-Public Use
  Company Number: JP-ABBOTT-12P-087-0941670-00

PATIENT
  Sex: Male
  Weight: 55 kg

DRUGS (5)
  1. PREDNISOLONE [Concomitant]
     Indication: RHEUMATOID ARTHRITIS
     Route: 048
     Dates: start: 20040101
  2. HUMIRA [Suspect]
     Dates: start: 20120223, end: 20120419
  3. PREDNISOLONE [Suspect]
     Indication: PRODUCT USED FOR UNKNOWN INDICATION
     Dates: start: 20040101
  4. HUMIRA [Suspect]
     Indication: RHEUMATOID ARTHRITIS
     Route: 058
     Dates: start: 20100603, end: 20120209
  5. ELDECALCITOL [Concomitant]
     Indication: OSTEOPOROSIS
     Route: 048
     Dates: start: 20110101

REACTIONS (9)
  - DECREASED IMMUNE RESPONSIVENESS [None]
  - CELL MARKER INCREASED [None]
  - MYCOBACTERIUM TUBERCULOSIS COMPLEX TEST POSITIVE [None]
  - COUGH [None]
  - CANDIDA TEST POSITIVE [None]
  - ASTHENIA [None]
  - PNEUMONIA STAPHYLOCOCCAL [None]
  - INGUINAL HERNIA [None]
  - MYCOBACTERIUM TUBERCULOSIS COMPLEX TEST NEGATIVE [None]
